FAERS Safety Report 12778979 (Version 2)
Quarter: 2018Q2

REPORT INFORMATION
  Report Type: Spontaneous
  Country: US (occurrence: US)
  Receive Date: 20160926
  Receipt Date: 20180521
  Transmission Date: 20180711
  Serious: No
  Sender: FDA-Public Use
  Company Number: US-JAZZ-2016-US-011417

PATIENT
  Sex: Female

DRUGS (46)
  1. ZANTAC [Concomitant]
     Active Substance: RANITIDINE HYDROCHLORIDE
  2. CYANOCOBALAMIN. [Concomitant]
     Active Substance: CYANOCOBALAMIN
  3. VITAMIN D [Concomitant]
     Active Substance: CHOLECALCIFEROL
  4. DUREZOL [Concomitant]
     Active Substance: DIFLUPREDNATE
  5. IBUPROFEN. [Concomitant]
     Active Substance: IBUPROFEN
  6. MICONAZOLE NITRATE. [Concomitant]
     Active Substance: MICONAZOLE NITRATE
  7. BROMDAY [Concomitant]
     Active Substance: BROMFENAC SODIUM
  8. TRAMADOL HCL [Concomitant]
     Active Substance: TRAMADOL HYDROCHLORIDE
  9. VITAMIN B COMPLEX [Concomitant]
     Active Substance: CYANOCOBALAMIN\DEXPANTHENOL\NIACINAMIDE\PYRIDOXINE HYDROCHLORIDE\RIBOFLAVIN 5^-PHOSPHATE SODIUM\THIAMINE HYDROCHLORIDE\VITAMIN B COMPLEX
  10. ACIDOPHILUS [Concomitant]
     Active Substance: LACTOBACILLUS ACIDOPHILUS
  11. LORAZEPAM. [Concomitant]
     Active Substance: LORAZEPAM
  12. XYLOCAINE [Concomitant]
     Active Substance: LIDOCAINE HYDROCHLORIDE
  13. PROLIA [Concomitant]
     Active Substance: DENOSUMAB
  14. IMODIUM A-D [Concomitant]
     Active Substance: LOPERAMIDE HYDROCHLORIDE
  15. XYREM [Suspect]
     Active Substance: SODIUM OXYBATE
     Dosage: 2.25 G, BID
     Route: 048
     Dates: start: 201202, end: 201202
  16. TYLENOL ARTHRITIS PAIN [Suspect]
     Active Substance: ACETAMINOPHEN
     Indication: PRODUCT USED FOR UNKNOWN INDICATION
  17. METAMUCIL [Concomitant]
     Active Substance: PLANTAGO SEED
  18. ANUSOL-HC [Concomitant]
  19. PROZAC [Concomitant]
     Active Substance: FLUOXETINE HYDROCHLORIDE
  20. TOLNAFTATE. [Concomitant]
     Active Substance: TOLNAFTATE
  21. VITAMIN D3 [Concomitant]
     Active Substance: CHOLECALCIFEROL
  22. DEPO-MEDROL [Concomitant]
     Active Substance: METHYLPREDNISOLONE ACETATE
  23. XYREM [Suspect]
     Active Substance: SODIUM OXYBATE
     Dosage: 4.5 G, BID
     Route: 048
     Dates: start: 201104, end: 2011
  24. XYREM [Suspect]
     Active Substance: SODIUM OXYBATE
     Dosage: 3 G, BID
     Route: 048
     Dates: start: 201202, end: 201208
  25. SYNTHROID [Concomitant]
     Active Substance: LEVOTHYROXINE SODIUM
  26. FERROUS SULFATE. [Concomitant]
     Active Substance: FERROUS SULFATE
  27. XARELTO [Concomitant]
     Active Substance: RIVAROXABAN
  28. ORTHOVISC [Concomitant]
     Active Substance: HYALURONIC ACID
  29. CLINDAMYCIN HYDROCHLORIDE. [Concomitant]
     Active Substance: CLINDAMYCIN HYDROCHLORIDE
  30. XYREM [Suspect]
     Active Substance: SODIUM OXYBATE
     Indication: NARCOLEPSY
     Dosage: 2.25 G, BID
     Route: 048
     Dates: start: 201103, end: 201104
  31. PROBIOTIC [Concomitant]
     Active Substance: PROBIOTICS NOS
  32. MAGNESIUM CARBONAT [Concomitant]
  33. LOTRIMIN [Concomitant]
     Active Substance: CLOTRIMAZOLE
  34. SYSTANE (HYPROMELLOSE 2910 (4000 MPA.S)) [Concomitant]
     Active Substance: HYPROMELLOSE 2910 (4000 MPA.S)
  35. PREDNISONE. [Concomitant]
     Active Substance: PREDNISONE
  36. ALENDRONATE SODIUM. [Concomitant]
     Active Substance: ALENDRONATE SODIUM
  37. XYREM [Suspect]
     Active Substance: SODIUM OXYBATE
     Dosage: DOSE ADJUSTMENTS
     Route: 048
     Dates: start: 201104, end: 201104
  38. XYREM [Suspect]
     Active Substance: SODIUM OXYBATE
     Dosage: 4.5 G, BID
     Route: 048
     Dates: start: 201208
  39. VITAMIN B12 [Concomitant]
     Active Substance: CYANOCOBALAMIN
  40. GABAPENTIN. [Concomitant]
     Active Substance: GABAPENTIN
  41. BIOTIN [Concomitant]
     Active Substance: BIOTIN
  42. CLOTRIMAZOLE. [Concomitant]
     Active Substance: CLOTRIMAZOLE
  43. EUCERIN [Concomitant]
     Active Substance: ENSULIZOLE\EUCERIN\OCTINOXATE\OCTISALATE\TITANIUM DIOXIDE\ZINC OXIDE
  44. FLUTICASONE PROPIONATE. [Concomitant]
     Active Substance: FLUTICASONE PROPIONATE
  45. LOSARTAN POTASSIUM. [Concomitant]
     Active Substance: LOSARTAN POTASSIUM
  46. BESIVANCE [Concomitant]
     Active Substance: BESIFLOXACIN

REACTIONS (2)
  - Diarrhoea [Unknown]
  - Arthritis [Not Recovered/Not Resolved]
